FAERS Safety Report 10113356 (Version 2)
Quarter: 2015Q1

REPORT INFORMATION
  Report Type: Other
  Country: US (occurrence: US)
  Receive Date: 20140425
  Receipt Date: 20150212
  Transmission Date: 20150720
  Serious: Yes (Hospitalization)
  Sender: FDA-Public Use
  Company Number: US-GSKPPD-2014GSK014731

PATIENT
  Age: 66 Year
  Sex: Female

DRUGS (6)
  1. DIOVAN [Concomitant]
     Active Substance: VALSARTAN
  2. IMDUR [Concomitant]
     Active Substance: ISOSORBIDE MONONITRATE
  3. NORVASC [Concomitant]
     Active Substance: AMLODIPINE BESYLATE
  4. CATAPRES TTS-3 PATCH [Concomitant]
  5. AVANDIA [Suspect]
     Active Substance: ROSIGLITAZONE MALEATE
     Indication: DIABETES MELLITUS
     Dosage: DATES OF AVANDIA USE COULD NOT BE CONFIRMED IN RECORDS REVIEWED.
     Route: 048
  6. LASIX [Concomitant]
     Active Substance: FUROSEMIDE

REACTIONS (2)
  - Angina pectoris [Recovered/Resolved]
  - Coronary artery disease [Recovered/Resolved]

NARRATIVE: CASE EVENT DATE: 20030616
